FAERS Safety Report 8916930 (Version 2)
Quarter: 2012Q4

REPORT INFORMATION
  Report Type: 
  Country: IT (occurrence: IT)
  Receive Date: 20121120
  Receipt Date: 20121211
  Transmission Date: 20130627
  Serious: Yes (Hospitalization)
  Sender: FDA-Public Use
  Company Number: IT-ROCHE-1156828

PATIENT
  Age: 28 Year
  Sex: Male

DRUGS (2)
  1. TORADOL [Suspect]
     Indication: TOOTHACHE
     Dosage: 30 mg/ml
     Route: 042
     Dates: start: 20121110, end: 20121110
  2. AUGMENTIN [Suspect]
     Indication: TOOTHACHE
     Dosage: 857 mg/125 mg
     Route: 048
     Dates: start: 20121110, end: 20121110

REACTIONS (6)
  - Tachycardia [Recovered/Resolved]
  - Dyspnoea [Recovered/Resolved]
  - Face oedema [Recovered/Resolved]
  - Hypotension [Recovered/Resolved]
  - Throat tightness [Recovered/Resolved]
  - Generalised erythema [Recovered/Resolved]
